FAERS Safety Report 6819458-3 (Version None)
Quarter: 2010Q3

REPORT INFORMATION
  Report Type: 
  Country: None (occurrence: None)
  Receive Date: 20100707
  Receipt Date: 20100622
  Transmission Date: 20110219
  Serious: Yes (Hospitalization)
  Sender: FDA-Public Use
  Company Number: NL-BRISTOL-MYERS SQUIBB COMPANY-15093362

PATIENT
  Age: 57 Year
  Sex: Female

DRUGS (22)
  1. CETUXIMAB [Suspect]
     Indication: NON-SMALL CELL LUNG CANCER
     Dosage: 400MG/M2: DAY1 CYCLE1 250MG/M2: 2010-ONG; WEEKLY LAST INF: 22-APR-2010
     Route: 042
     Dates: start: 20100311
  2. CISPLATIN [Suspect]
     Indication: NON-SMALL CELL LUNG CANCER
     Dosage: LAST INF: 22-APR-2010
     Route: 042
     Dates: start: 20100311
  3. PEMETREXED DISODIUM [Suspect]
     Indication: NON-SMALL CELL LUNG CANCER
     Dosage: LAST INF: 22-APR-2010
     Route: 042
     Dates: start: 20100311
  4. ASASANTIN [Concomitant]
  5. COVERSYL [Concomitant]
     Dates: end: 20100419
  6. OXYCODONE HCL [Concomitant]
  7. OXYCONTIN [Concomitant]
  8. EPREX [Concomitant]
     Dates: start: 20100308
  9. MOVICOLON [Concomitant]
     Dates: end: 20100423
  10. METOCLOPRAMIDE [Concomitant]
     Dates: start: 20100309
  11. SIMVASTATIN [Concomitant]
  12. FUCITHALMIC [Concomitant]
  13. OMEPRAZOLE [Concomitant]
     Dates: start: 20100111
  14. ZOFRAN [Concomitant]
     Dates: start: 20100318
  15. ACETAMINOPHEN [Concomitant]
     Dates: start: 20100406
  16. DICLOFENAC SODIUM [Concomitant]
     Dates: start: 20100408, end: 20100426
  17. LASIX [Concomitant]
     Dates: start: 20100423, end: 20100424
  18. TAVEGIL [Concomitant]
     Dates: start: 20100422, end: 20100422
  19. APREPITANT [Concomitant]
     Dates: start: 20100422, end: 20100424
  20. KYTRIL [Concomitant]
     Dates: start: 20100422, end: 20100422
  21. POTASSIUM CHLORIDE [Concomitant]
     Dates: start: 20100422, end: 20100422
  22. MAGNESIUM CHLORIDE [Concomitant]
     Dates: start: 20100422, end: 20100422

REACTIONS (1)
  - RECTAL HAEMORRHAGE [None]
